FAERS Safety Report 7402119-X (Version None)
Quarter: 2011Q1

REPORT INFORMATION
  Report Type: 
  Country: None (occurrence: None)
  Receive Date: 20110330
  Receipt Date: 20110316
  Transmission Date: 20110831
  Serious: Yes (Other)
  Sender: FDA-Public Use
  Company Number: TPA2011A01214

PATIENT
  Age: 63 Year
  Sex: Male

DRUGS (2)
  1. COLCHIMAX (COLCHICINE, TIEMONIUM METHYSULPHATE, PAPAVER SOMNIFERUM POW [Concomitant]
  2. ADENURIC (FEBUXOSTAT) [Suspect]
     Indication: HYPERURICAEMIA
     Dosage: 80 MG (80 MG, 1 IN 1 D), PER ORAL
     Route: 048
     Dates: start: 20101101, end: 20101101

REACTIONS (3)
  - SYNCOPE [None]
  - HYPERHIDROSIS [None]
  - LOSS OF CONSCIOUSNESS [None]
